FAERS Safety Report 8341409-3 (Version None)
Quarter: 2012Q2

REPORT INFORMATION
  Report Type: 
  Country: None (occurrence: None)
  Receive Date: 20120507
  Receipt Date: 20120426
  Transmission Date: 20120825
  Serious: Yes (Other)
  Sender: FDA-Public Use
  Company Number: JP-PFIZER INC-2012110728

PATIENT
  Age: 83 Year
  Sex: Female

DRUGS (8)
  1. METHOTREXATE [Concomitant]
     Dosage: UNK
     Route: 048
     Dates: start: 20120409
  2. BUFFERIN [Concomitant]
     Route: 048
  3. ZANTAC [Concomitant]
     Route: 048
  4. CELEBREX [Suspect]
     Dosage: 200 MG, UNKNOWN/D
     Route: 048
     Dates: start: 20120412, end: 20120413
  5. PREDNISOLONE [Concomitant]
     Dosage: UNK
     Route: 048
     Dates: start: 20120409
  6. DISOPYRAMIDE PHOSPHATE [Concomitant]
     Route: 048
  7. MUCOSTA [Concomitant]
     Dosage: UNK
     Route: 048
     Dates: start: 20120409
  8. VERAPAMIL HCL [Concomitant]
     Route: 048

REACTIONS (3)
  - PRURITUS [None]
  - FLUSHING [None]
  - SWELLING [None]
